FAERS Safety Report 9327309 (Version 1)
Quarter: 2013Q2

REPORT INFORMATION
  Report Type: Report from Study
  Country: FR (occurrence: FR)
  Receive Date: 20130604
  Receipt Date: 20130604
  Transmission Date: 20140414
  Serious: Yes (Hospitalization)
  Sender: FDA-Public Use
  Company Number: FR-PFIZER INC-2009265836

PATIENT
  Age: 54 Year
  Sex: Male

DRUGS (9)
  1. EPIRUBICIN HCL [Suspect]
     Indication: GASTRIC CANCER
     Dosage: 1ST COURSE
     Dates: start: 20080116
  2. CISPLATIN [Suspect]
     Indication: GASTRIC CANCER
     Dosage: 1ST COURSE
     Dates: start: 20080116
  3. XELODA [Suspect]
     Indication: GASTRIC CANCER
     Dosage: 1ST COURSE
     Dates: start: 20080116
  4. INNOHEP [Concomitant]
     Indication: THROMBOSIS PROPHYLAXIS
     Dosage: 14000 IU
     Route: 048
  5. MOPRAL [Concomitant]
     Indication: GASTRIC DISORDER
     Dosage: 40 MG
     Route: 048
  6. SPECIAFOLDINE [Concomitant]
     Indication: ANAEMIA
     Dosage: 5 MG
     Route: 048
  7. SPASFON [Concomitant]
     Indication: PAIN
     Dosage: 1 DF
     Route: 048
  8. LEVOCARNIL [Concomitant]
     Dosage: UNK
     Route: 048
  9. LIPANTHYL [Concomitant]
     Indication: HYPERCHOLESTEROLAEMIA
     Dosage: 160 MG
     Route: 048

REACTIONS (1)
  - General physical health deterioration [Recovering/Resolving]
